FAERS Safety Report 5369762-3 (Version None)
Quarter: 2007Q2

REPORT INFORMATION
  Report Type: 
  Country: None (occurrence: None)
  Receive Date: 20070625
  Receipt Date: 20070620
  Transmission Date: 20071010
  Serious: Yes (Death, Life-Threatening, Hospitalization)
  Sender: FDA-Public Use
  Company Number: NL-ABBOTT-06P-114-0322969-00

PATIENT
  Sex: Female
  Weight: 70 kg

DRUGS (6)
  1. HUMIRA [Suspect]
     Indication: RHEUMATOID ARTHRITIS
     Route: 058
     Dates: start: 20040705, end: 20060112
  2. METHOTREXATE [Concomitant]
     Indication: RHEUMATOID ARTHRITIS
     Dates: start: 20050501
  3. FOLIC ACID [Concomitant]
     Indication: VITAMIN SUPPLEMENTATION
     Dates: start: 20040615
  4. SELOCOMB [Concomitant]
     Indication: HYPERTENSION
     Dates: start: 20040105
  5. ZOCOR [Concomitant]
     Indication: BLOOD CHOLESTEROL
     Dates: start: 20031106
  6. HUMIRA [Concomitant]
     Indication: RHEUMATOID ARTHRITIS
     Route: 058
     Dates: start: 20040208

REACTIONS (12)
  - ANAEMIA [None]
  - BLOOD LACTATE DEHYDROGENASE INCREASED [None]
  - CARDIAC ARREST [None]
  - HISTIOCYTOSIS HAEMATOPHAGIC [None]
  - HYPOVOLAEMIC SHOCK [None]
  - LEUKOPENIA [None]
  - LIVER PALPABLE SUBCOSTAL [None]
  - LYMPHOCYTE MORPHOLOGY ABNORMAL [None]
  - SPLENIC HAEMORRHAGE [None]
  - SPLENOMEGALY [None]
  - THROMBOCYTOPENIA [None]
  - VISCERAL LEISHMANIASIS [None]
